FAERS Safety Report 25188008 (Version 1)
Quarter: 2025Q2

REPORT INFORMATION
  Report Type: Spontaneous
  Country: US (occurrence: US)
  Receive Date: 20250411
  Receipt Date: 20250411
  Transmission Date: 20250716
  Serious: No
  Sender: KINIKSA PHARMACEUTICALS
  Company Number: US-Kiniksa Pharmaceuticals Ltd.-2025KPU000657

PATIENT
  Age: 68 Year
  Sex: Female

DRUGS (2)
  1. ARCALYST [Suspect]
     Active Substance: RILONACEPT
     Indication: Pericarditis
     Route: 058
     Dates: start: 20250213
  2. ARCALYST [Suspect]
     Active Substance: RILONACEPT
     Route: 058

REACTIONS (8)
  - Blood pressure increased [Unknown]
  - Product use issue [Unknown]
  - Pericarditis [Unknown]
  - Hypotension [Unknown]
  - Syncope [Unknown]
  - Loss of personal independence in daily activities [Unknown]
  - Product dose omission issue [Unknown]
  - Insurance issue [Unknown]

NARRATIVE: CASE EVENT DATE: 20250305
